FAERS Safety Report 10690681 (Version 3)
Quarter: 2015Q1

REPORT INFORMATION
  Report Type: Spontaneous
  Country: US (occurrence: None)
  Receive Date: 20150102
  Receipt Date: 20150126
  Transmission Date: 20150720
  Serious: Yes (Hospitalization, Other)
  Sender: FDA-Public Use
  Company Number: 2014-US-017045

PATIENT
  Sex: Female

DRUGS (4)
  1. XANAX [Suspect]
     Active Substance: ALPRAZOLAM
     Indication: PAIN
     Route: 048
  2. XYREM [Suspect]
     Active Substance: SODIUM OXYBATE
     Indication: CATAPLEXY
     Route: 048
     Dates: start: 201306, end: 2013
  3. XYREM [Suspect]
     Active Substance: SODIUM OXYBATE
     Indication: NARCOLEPSY
     Route: 048
     Dates: start: 201306, end: 2013
  4. OXYCODONE (OXYCODONE HYDROCHLORIDE) (OXYCODONE) [Suspect]
     Active Substance: OXYCODONE
     Indication: PAIN
     Dosage: 50 MG, 6 TIMES PER DAY

REACTIONS (6)
  - Depression [None]
  - Fall [None]
  - Condition aggravated [None]
  - Mental disorder [None]
  - Pain [None]
  - Ankle fracture [None]

NARRATIVE: CASE EVENT DATE: 2014
